FAERS Safety Report 18506103 (Version 1)
Quarter: 2020Q4

REPORT INFORMATION
  Report Type: Spontaneous
  Country: KR (occurrence: KR)
  Receive Date: 20201116
  Receipt Date: 20201116
  Transmission Date: 20210114
  Serious: Yes (Life-Threatening, Hospitalization, Other)
  Sender: FDA-Public Use
  Company Number: KR-JNJFOC-20201112927

PATIENT

DRUGS (2)
  1. TOPAMAX [Suspect]
     Active Substance: TOPIRAMATE
     Indication: EPILEPSY
     Route: 065
  2. TOPAMAX [Suspect]
     Active Substance: TOPIRAMATE
     Indication: MIGRAINE PROPHYLAXIS

REACTIONS (42)
  - Nephrolithiasis [Unknown]
  - Menstrual disorder [Unknown]
  - Haematuria [Unknown]
  - Depression [Unknown]
  - Aphasia [Unknown]
  - Speech disorder [Unknown]
  - Hypoaesthesia [Unknown]
  - Paralysis [Unknown]
  - Hallucination [Unknown]
  - Weight decreased [Unknown]
  - Steatorrhoea [Unknown]
  - Acidosis [Unknown]
  - Muscle spasms [Unknown]
  - Palpitations [Unknown]
  - Affect lability [Unknown]
  - Skin tightness [Unknown]
  - Aggression [Unknown]
  - Torticollis [Unknown]
  - Nervousness [Unknown]
  - Insomnia [Unknown]
  - Eyelid ptosis [Unknown]
  - Muscle contractions involuntary [Unknown]
  - Thinking abnormal [Unknown]
  - Decreased appetite [Unknown]
  - Rash [Unknown]
  - Product use issue [Unknown]
  - Cognitive disorder [Unknown]
  - Agitation [Unknown]
  - Psychomotor skills impaired [Unknown]
  - Dizziness [Unknown]
  - Amnesia [Unknown]
  - Adverse event [Unknown]
  - Hospitalisation [Unknown]
  - Hypohidrosis [Unknown]
  - Paraesthesia [Unknown]
  - Disturbance in attention [Unknown]
  - Hepatic enzyme decreased [Unknown]
  - Tremor [Unknown]
  - Visual impairment [Unknown]
  - Menorrhagia [Unknown]
  - Hypercalciuria [Unknown]
  - Off label use [Unknown]
